FAERS Safety Report 4680802-7 (Version None)
Quarter: 2005Q2

REPORT INFORMATION
  Report Type: 
  Country: None (occurrence: None)
  Receive Date: 20050601
  Receipt Date: 20050526
  Transmission Date: 20051028
  Serious: Yes (Life-Threatening, Hospitalization)
  Sender: FDA-Public Use
  Company Number: TCI2005A02421

PATIENT
  Sex: Male

DRUGS (12)
  1. ACTOS [Suspect]
     Indication: DIABETES MELLITUS NON-INSULIN-DEPENDENT
     Dosage: 30 MG (15 MG, 2 IN 1 D)
     Route: 048
     Dates: start: 20050408, end: 20050507
  2. HALOPERIDOL [Concomitant]
  3. CHLORPROMAZINE HCL [Concomitant]
  4. NITRAZEPAM [Concomitant]
  5. ARTANE [Concomitant]
  6. ASPIRIN [Concomitant]
  7. NU LOTAN (LOSARTAN POTASSIUM) [Concomitant]
  8. DILTIAZEM HYDROCHLORIDE [Concomitant]
  9. GLIMICRON (GLICLAZIDE) [Concomitant]
  10. TENORMIN [Concomitant]
  11. LIPITOR [Concomitant]
  12. SINLESTAL (PROBUCOL) [Concomitant]

REACTIONS (3)
  - ACUTE RESPIRATORY FAILURE [None]
  - OEDEMA [None]
  - PALPITATIONS [None]
